FAERS Safety Report 5385047-3 (Version None)
Quarter: 2007Q3

REPORT INFORMATION
  Report Type: 
  Country: None (occurrence: None)
  Receive Date: 20070712
  Receipt Date: 20070704
  Transmission Date: 20080115
  Serious: Yes (Disabling, Other)
  Sender: FDA-Public Use
  Company Number: PHBS2007JP03505

PATIENT
  Age: 30 Year
  Sex: Female
  Weight: 41 kg

DRUGS (92)
  1. SANDIMMUNE [Suspect]
     Indication: STEM CELL TRANSPLANT
     Dosage: 2.4 ML/DAY
     Route: 042
     Dates: start: 20060626, end: 20060626
  2. SANDIMMUNE [Suspect]
     Dosage: 10 ML/DAY
     Route: 042
     Dates: start: 20060627, end: 20060628
  3. SANDIMMUNE [Suspect]
     Dosage: 2.4 ML/DAY
     Route: 042
     Dates: start: 20060629, end: 20060630
  4. SANDIMMUNE [Suspect]
     Dosage: 10 ML/DAY
     Route: 042
     Dates: start: 20060701, end: 20060702
  5. SANDIMMUNE [Suspect]
     Dosage: 5 ML/DAY
     Route: 042
     Dates: start: 20060703, end: 20060703
  6. SANDIMMUNE [Suspect]
     Dosage: 2.4 ML/DAY
     Route: 042
     Dates: start: 20060704, end: 20060705
  7. SANDIMMUNE [Suspect]
     Dosage: 5 ML/DAY
     Route: 042
     Dates: start: 20060706, end: 20060710
  8. CYCLOPHOSPHAMIDE [Suspect]
     Indication: STEM CELL TRANSPLANT
     Dosage: 2000 MG/DAY
     Route: 042
     Dates: start: 20060624
  9. CYCLOPHOSPHAMIDE [Suspect]
     Dosage: 400 MG/DAY
     Route: 042
     Dates: end: 20060625
  10. IRRADIATION [Suspect]
     Indication: STEM CELL TRANSPLANT
  11. SOLANAX [Concomitant]
     Dosage: 0.4 MG/DAY
     Route: 048
     Dates: start: 20060619
  12. SOLANAX [Concomitant]
     Dosage: 0.8 MG/DAY
     Route: 048
  13. SOLANAX [Concomitant]
     Dosage: 0.4 MG/DAY
     Route: 048
  14. POLYMYXIN B SULFATE [Concomitant]
     Dosage: 3000000 IU/DAY
     Route: 048
     Dates: start: 20060619
  15. TAKEPRON [Concomitant]
     Dosage: 30 MG/DAY
     Route: 048
     Dates: start: 20060619
  16. MYCOSYST [Concomitant]
     Dosage: 200 MG/DAY
     Route: 048
     Dates: start: 20060619, end: 20060629
  17. ISCOTIN [Concomitant]
     Dosage: 50 MG/DAY
     Route: 048
     Dates: start: 20060619, end: 20060629
  18. CIPROFLOXACIN [Concomitant]
     Dosage: 600 MG/DAY
     Route: 048
     Dates: start: 20060619
  19. MUCODYNE [Concomitant]
     Dosage: 1500 MG/DAY
     Route: 048
     Dates: start: 20060619, end: 20060714
  20. ZOVIRAX [Concomitant]
     Route: 065
     Dates: start: 20060620, end: 20060703
  21. URSO 250 [Concomitant]
     Dosage: 300 MG/DAY
     Route: 048
     Dates: start: 20060622
  22. FUNGUARD [Concomitant]
     Dosage: 150 MG/DAY
     Route: 042
     Dates: start: 20060619
  23. FUNGUARD [Concomitant]
     Dosage: 300 MG/DAY
     Route: 042
  24. FUNGUARD [Concomitant]
     Dosage: 150 MG/DAY
     Route: 042
  25. FUNGUARD [Concomitant]
     Dosage: 300 MG/DAY
     Route: 042
  26. HEPARIN SODIUM [Concomitant]
     Dosage: 30 ML/DAY
     Route: 042
     Dates: start: 20060620
  27. HEPARIN SODIUM [Concomitant]
     Dosage: 40 ML/DAY
     Route: 042
  28. HEPARIN SODIUM [Concomitant]
     Dosage: 20 ML/DAY
     Route: 042
  29. HEPARIN SODIUM [Concomitant]
     Dosage: 50 ML/DAY
     Route: 042
  30. HEPARIN SODIUM [Concomitant]
     Dosage: 60 ML/DAY
     Route: 042
  31. HEPARIN SODIUM [Concomitant]
     Dosage: 50 ML/DAY
     Route: 042
  32. ACYCLOVIR [Concomitant]
     Dosage: 20 ML/DAY
     Route: 042
     Dates: start: 20060620
  33. ACYCLOVIR [Concomitant]
     Dosage: 30 ML/DAY
     Route: 042
  34. MEYLON [Concomitant]
     Dosage: 40 ML/DAY
     Route: 042
     Dates: start: 20060621
  35. MEYLON [Concomitant]
     Dosage: 80 ML/DAY
     Route: 042
  36. MEYLON [Concomitant]
     Dosage: 40 ML/DAY
     Route: 042
     Dates: end: 20060625
  37. DEXAMETHASONE SODIUM PHOSPHATE [Concomitant]
     Dosage: 2 ML/DAY
     Route: 042
     Dates: start: 20060621, end: 20060623
  38. ZOFRAN [Concomitant]
     Dosage: 4 ML/DAY
     Route: 042
     Dates: start: 20060621
  39. ZOFRAN [Concomitant]
     Dosage: 10 ML/DAY
     Route: 042
  40. ZOFRAN [Concomitant]
     Dosage: 4 ML/DAY
     Route: 042
     Dates: end: 20060625
  41. ATARAX [Concomitant]
     Dosage: 2 ML/DAY
     Route: 042
     Dates: start: 20060621
  42. ATARAX [Concomitant]
     Dosage: 3 ML/DAY
     Route: 042
  43. ATARAX [Concomitant]
     Dosage: 4 ML/DAY
     Route: 042
  44. ATARAX [Concomitant]
     Dosage: 2 ML/DAY
     Route: 042
  45. ATARAX [Concomitant]
     Dosage: 3 ML/DAY
     Route: 042
  46. ATARAX [Concomitant]
     Dosage: 6 ML/DAY
     Route: 042
  47. ATARAX [Concomitant]
     Dosage: 1 ML/DAY
     Route: 042
     Dates: end: 20060613
  48. GLYCEOL [Concomitant]
     Dosage: 400 ML/DAY
     Route: 042
     Dates: start: 20060621, end: 20060623
  49. HEPARIN SODIUM [Concomitant]
     Dosage: 0.5 DF/DAY
     Route: 042
  50. HEPARIN SODIUM [Concomitant]
     Dosage: 1 DF/DAY
     Route: 042
  51. HEPARIN SODIUM [Concomitant]
     Dosage: 0.5 DF/DAY
     Route: 042
  52. HEPARIN SODIUM [Concomitant]
     Dosage: 1 DF/DAY
     Route: 042
  53. HEPARIN SODIUM [Concomitant]
     Dosage: 0.5 DF/DAY
     Route: 042
     Dates: start: 20060622
  54. HEPARIN SODIUM [Concomitant]
     Dosage: 1 DF/DAY
     Route: 042
  55. HEPARIN SODIUM [Concomitant]
     Dosage: 0.5 DF/DAY
     Route: 042
  56. HEPARIN SODIUM [Concomitant]
     Dosage: 1 DF/DAY
     Route: 042
  57. HEPARIN SODIUM [Concomitant]
     Dosage: 0.5 DF/DAY
     Route: 042
  58. HEPARIN SODIUM [Concomitant]
     Dosage: 1 DF/DAY
     Route: 042
  59. LASIX [Concomitant]
     Dosage: 1 ML/DAY
     Route: 042
     Dates: start: 20060623
  60. LASIX [Concomitant]
     Dosage: 8 ML/DAY
     Route: 042
  61. LASIX [Concomitant]
     Dosage: 2 ML/DAY
     Route: 042
  62. LASIX [Concomitant]
     Dosage: 4 ML/DAY
     Route: 042
  63. LASIX [Concomitant]
     Dosage: 1 ML/DAY
     Route: 042
  64. LASIX [Concomitant]
     Dosage: 4 ML/DAY
     Route: 042
  65. LASIX [Concomitant]
     Dosage: 2 ML/DAY
     Route: 042
  66. LASIX [Concomitant]
     Dosage: 1 ML/DAY
     Route: 042
     Dates: end: 20060715
  67. PRIMPERAN INJ [Concomitant]
     Dosage: 4 ML/DAY
     Route: 042
     Dates: start: 20060623
  68. PRIMPERAN INJ [Concomitant]
     Dosage: 8 ML/DAY
     Route: 042
     Dates: end: 20060710
  69. UROMITEXAN [Concomitant]
     Dosage: 36 ML/DAY
     Route: 042
     Dates: start: 20060624
  70. UROMITEXAN [Concomitant]
     Dosage: 32 ML/DAY
     Route: 042
     Dates: end: 20060625
  71. LEUPROLIDE ACETATE [Concomitant]
     Dosage: 1.88 MG/DAY
     Route: 042
     Dates: start: 20060626, end: 20060626
  72. OMEPRAL [Concomitant]
     Dosage: 20 MG/DAY
     Route: 042
     Dates: start: 20060626, end: 20060710
  73. FLUCONAZOLE [Concomitant]
     Dosage: 400 MG/DAY
     Route: 042
     Dates: start: 20060626
  74. ADALAT [Concomitant]
     Dosage: 5 MG/DAY
     Route: 048
     Dates: start: 20060627, end: 20060713
  75. SOLU-CORTEF [Concomitant]
     Dosage: 400 MG/DAY
     Route: 042
     Dates: start: 20060627
  76. SOLU-CORTEF [Concomitant]
     Dosage: 500 MG/DAY
     Route: 042
  77. SOLU-CORTEF [Concomitant]
     Dosage: 100 MG/DAY
     Route: 042
  78. SOLU-CORTEF [Concomitant]
     Dosage: 300 MG/DAY
     Route: 042
     Dates: end: 20060707
  79. HAPTOGLOBIN [Concomitant]
     Dosage: 2000 IU/DAY
     Route: 042
     Dates: start: 20060627, end: 20060627
  80. METHOTREXATE [Concomitant]
     Dosage: 140 MG/DAY
     Route: 042
     Dates: start: 20060628
  81. METHOTREXATE [Concomitant]
     Dosage: 10 MG/DAY
     Route: 042
  82. METHOTREXATE [Concomitant]
     Dosage: 9.45 MG/DAY
     Route: 042
     Dates: end: 20060703
  83. NEO-MINOPHAGEN C [Concomitant]
     Dosage: 20 ML/DAY
     Route: 042
     Dates: start: 20060628, end: 20060707
  84. SULPYRINE [Concomitant]
     Dosage: 4 ML/DAY
     Route: 042
     Dates: start: 20060630
  85. SULPYRINE [Concomitant]
     Dosage: 1 ML/DAY
     Route: 042
     Dates: end: 20060706
  86. POLYGLOBIN /SPA/ [Concomitant]
     Dosage: 5 G/DAY
     Route: 042
     Dates: start: 20060701, end: 20060708
  87. CLINDAMYCIN PHOSPHATE [Concomitant]
     Dosage: 4 ML/DAY
     Route: 042
     Dates: start: 20060701, end: 20060710
  88. MEROPEN [Concomitant]
     Dosage: 2 G/DAY
     Route: 042
     Dates: start: 20060707
  89. MEROPEN [Concomitant]
     Dosage: 1 G/DAY
     Route: 042
  90. MEROPEN [Concomitant]
     Dosage: 2 G/DAY
     Route: 042
  91. PAZUCROSS [Concomitant]
     Dosage: 1000 MG/DAY
     Route: 042
     Dates: start: 20060707
  92. PENTAGIN [Concomitant]
     Dosage: 3 ML/DAY
     Route: 042
     Dates: start: 20060707, end: 20060707

REACTIONS (20)
  - ACUTE RESPIRATORY FAILURE [None]
  - BLOOD PRESSURE INCREASED [None]
  - BRAIN NATRIURETIC PEPTIDE INCREASED [None]
  - CAPILLARY PERMEABILITY INCREASED [None]
  - CHEST DISCOMFORT [None]
  - CHEST PAIN [None]
  - DYSPNOEA [None]
  - HYPERVENTILATION [None]
  - HYPOVENTILATION [None]
  - IMMUNOSUPPRESSANT DRUG LEVEL INCREASED [None]
  - LIVER DISORDER [None]
  - MALAISE [None]
  - OXYGEN SATURATION DECREASED [None]
  - PAIN [None]
  - PLEURAL EFFUSION [None]
  - PULMONARY CONGESTION [None]
  - PYREXIA [None]
  - TACHYPNOEA [None]
  - VOMITING [None]
  - WHITE BLOOD CELL COUNT DECREASED [None]
